FAERS Safety Report 11641862 (Version 1)
Quarter: 2015Q4

REPORT INFORMATION
  Report Type: Spontaneous
  Country: US (occurrence: US)
  Receive Date: 20151019
  Receipt Date: 20151019
  Transmission Date: 20160304
  Serious: Yes (Hospitalization, Other)
  Sender: FDA-Public Use
  Company Number: US-BAUSCH-BL-2015-023253

PATIENT
  Age: 81 Year
  Sex: Female
  Weight: 68 kg

DRUGS (10)
  1. NEURONTIN [Concomitant]
     Active Substance: GABAPENTIN
     Indication: PRODUCT USED FOR UNKNOWN INDICATION
     Dates: end: 201505
  2. XANAX [Concomitant]
     Active Substance: ALPRAZOLAM
     Indication: ANXIETY
     Route: 048
     Dates: end: 201505
  3. PROZAC [Concomitant]
     Active Substance: FLUOXETINE HYDROCHLORIDE
     Indication: DEPRESSION
     Dates: end: 201505
  4. GABAPENTIN. [Suspect]
     Active Substance: GABAPENTIN
     Indication: PAIN
     Route: 048
     Dates: start: 20150512
  5. PAXIL [Suspect]
     Active Substance: PAROXETINE HYDROCHLORIDE
     Route: 065
  6. TIZANIDINE HYDROCHLORIDE. [Concomitant]
     Active Substance: TIZANIDINE HYDROCHLORIDE
     Indication: PAIN
     Route: 048
     Dates: start: 20150216, end: 201505
  7. ATIVAN [Suspect]
     Active Substance: LORAZEPAM
     Indication: PRODUCT USED FOR UNKNOWN INDICATION
     Dosage: AS NEEDED.
     Route: 048
     Dates: start: 2015
  8. GABAPENTIN. [Suspect]
     Active Substance: GABAPENTIN
     Indication: HYPERHIDROSIS
     Dosage: 1 PILL
     Route: 048
     Dates: start: 201508
  9. PAXIL [Suspect]
     Active Substance: PAROXETINE HYDROCHLORIDE
     Indication: PRODUCT USED FOR UNKNOWN INDICATION
     Route: 065
     Dates: start: 20150828
  10. FLEXERIL [Concomitant]
     Active Substance: CYCLOBENZAPRINE HYDROCHLORIDE
     Indication: PAIN
     Dosage: AS NEEDED.
     Dates: end: 201505

REACTIONS (8)
  - Hyperhidrosis [Recovering/Resolving]
  - Dry mouth [Unknown]
  - Eye disorder [Not Recovered/Not Resolved]
  - Abnormal behaviour [Unknown]
  - Hallucination [Unknown]
  - Paraesthesia [Not Recovered/Not Resolved]
  - Rib fracture [Unknown]
  - Fall [Unknown]

NARRATIVE: CASE EVENT DATE: 2015
